FAERS Safety Report 7457988-4 (Version None)
Quarter: 2011Q2

REPORT INFORMATION
  Report Type: 
  Country: None (occurrence: None)
  Receive Date: 20110504
  Receipt Date: 20101227
  Transmission Date: 20111010
  Serious: Yes (Hospitalization)
  Sender: FDA-Public Use
  Company Number: US-SANOFI-AVENTIS-2011SA000017

PATIENT
  Age: 72 Year
  Sex: Male

DRUGS (2)
  1. APIDRA [Suspect]
     Dosage: DOSE: SLIDING SCALE 55 TO 65 UNITS DAILY VIA PUMP
     Route: 058
  2. APIDRA [Suspect]
     Dosage: DOSE: SLIDING SCALE 55 TO 65 UNITS DAILY VIA PUMP
     Route: 058

REACTIONS (3)
  - PRODUCT QUALITY ISSUE [None]
  - DRUG INEFFECTIVE [None]
  - HYPERGLYCAEMIA [None]
